FAERS Safety Report 4334666-1 (Version None)
Quarter: 2004Q1

REPORT INFORMATION
  Report Type: 
  Country: None (occurrence: None)
  Receive Date: 20040329
  Receipt Date: 20031223
  Transmission Date: 20041129
  Serious: No
  Sender: FDA-Public Use
  Company Number: 03P-163-0244434-00

PATIENT
  Age: 76 Year
  Sex: Female

DRUGS (19)
  1. HUMIRA [Suspect]
     Indication: RHEUMATOID ARTHRITIS
     Dosage: 40 MG, 1 IN 2 WK, SUBCUTANEOUS
     Route: 058
     Dates: start: 20031115, end: 20031129
  2. OXYBUTYNIN HYDROCHLORIDE [Concomitant]
  3. FUROSEMIDE [Concomitant]
  4. SPIRONOLACTONE [Concomitant]
  5. POLYSACCHARIDE-IRON COMPLEX [Concomitant]
  6. RALOXIFENE HCL [Concomitant]
  7. CYANOCOBALAMIN [Concomitant]
  8. GABAPENTIN [Concomitant]
  9. CALCIUM WITH VITAMIN D [Concomitant]
  10. BETACAROTENE [Concomitant]
  11. MULTI-VITAMINS [Concomitant]
  12. PANTOPRAZOLE [Concomitant]
  13. MIRAPEX [Concomitant]
  14. PREDNISONE [Concomitant]
  15. LEVOTHYROXINE SODIUM [Concomitant]
  16. DOCUSATE SODIUM [Concomitant]
  17. RESTASIS [Concomitant]
  18. RANITIDINE [Concomitant]
  19. ACETAMINOPHEN [Concomitant]

REACTIONS (1)
  - WOUND HAEMORRHAGE [None]
